FAERS Safety Report 10578352 (Version 1)
Quarter: 2014Q4

REPORT INFORMATION
  Report Type: Spontaneous
  Country: US (occurrence: None)
  Receive Date: 20141111
  Receipt Date: 20141111
  Transmission Date: 20150529
  Serious: Yes (Other)
  Sender: FDA-Public Use
  Company Number: None

PATIENT
  Age: 61 Year
  Sex: Female
  Weight: 59.2 kg

DRUGS (1)
  1. CLOPIDOGREL [Suspect]
     Active Substance: CLOPIDOGREL BISULFATE
     Indication: PRODUCT LABEL ISSUE
     Dosage: 1 PILL ONCE DAILY TAKEN BY MOUTH
     Route: 048
     Dates: start: 20141101, end: 20141108

REACTIONS (7)
  - Visual impairment [None]
  - Constipation [None]
  - Dry mouth [None]
  - Chapped lips [None]
  - Dehydration [None]
  - Pain [None]
  - Vitreous floaters [None]

NARRATIVE: CASE EVENT DATE: 20141103
